FAERS Safety Report 19834275 (Version 3)
Quarter: 2021Q4

REPORT INFORMATION
  Report Type: Report from Study
  Country: CO (occurrence: CO)
  Receive Date: 20210915
  Receipt Date: 20211221
  Transmission Date: 20220303
  Serious: Yes (Hospitalization, Other)
  Sender: FDA-Public Use
  Company Number: CO-NOVARTISPH-NVSC2020CO327988

PATIENT
  Age: 75 Year
  Sex: Female
  Weight: 78 kg

DRUGS (4)
  1. XOLAIR [Suspect]
     Active Substance: OMALIZUMAB
     Indication: Asthma
     Dosage: 300 MG, QMO
     Route: 058
     Dates: start: 201907
  2. XOLAIR [Suspect]
     Active Substance: OMALIZUMAB
     Dosage: 300 MG, QMO
     Route: 058
  3. XOLAIR [Suspect]
     Active Substance: OMALIZUMAB
     Dosage: 300 MG, QMO
     Route: 058
     Dates: start: 202102
  4. DOLEX [Concomitant]
     Active Substance: IBUPROFEN
     Indication: Bone pain
     Dosage: 665 MG, QD
     Route: 048

REACTIONS (9)
  - Back pain [Recovered/Resolved]
  - Pulmonary pain [Recovered/Resolved]
  - Bronchial injury [Unknown]
  - Illness [Unknown]
  - Cough [Recovered/Resolved]
  - Asthma [Recovered/Resolved]
  - Neoplasm malignant [Unknown]
  - Hypertension [Unknown]
  - Abdominal pain upper [Unknown]

NARRATIVE: CASE EVENT DATE: 20201019
